FAERS Safety Report 6439952-7 (Version None)
Quarter: 2009Q4

REPORT INFORMATION
  Report Type: 
  Country: None (occurrence: None)
  Receive Date: 20091113
  Receipt Date: 20091110
  Transmission Date: 20100525
  Serious: Yes (Other)
  Sender: FDA-Public Use
  Company Number: US-JNJCH-2009029472

PATIENT
  Age: 27 Year
  Sex: Male

DRUGS (2)
  1. BENADRYL [Suspect]
     Indication: DRUG USE FOR UNKNOWN INDICATION
     Dosage: TEXT:UNKNOWN
     Route: 048
  2. AMBIEN [Suspect]
     Indication: SLEEP DISORDER
     Dosage: TEXT:5MG QD
     Route: 048
     Dates: start: 20091006, end: 20091007

REACTIONS (3)
  - AMNESIA [None]
  - DRY THROAT [None]
  - INSOMNIA [None]
